FAERS Safety Report 9730739 (Version 1)
Quarter: 2013Q4

REPORT INFORMATION
  Report Type: Spontaneous
  Country: DK (occurrence: FR)
  Receive Date: 20131202
  Receipt Date: 20131202
  Transmission Date: 20140711
  Serious: Yes (Other)
  Sender: FDA-Public Use
  Company Number: FR-FRI-1000051810

PATIENT
  Age: 83 Year
  Sex: Female

DRUGS (15)
  1. ESCITALOPRAM [Suspect]
     Indication: DEPRESSION
     Dosage: 1 DF
     Route: 048
     Dates: start: 201308, end: 20131030
  2. IXPRIM [Interacting]
     Dosage: 3 DF
     Route: 048
     Dates: start: 2013, end: 20131023
  3. AMLOR [Concomitant]
  4. TAHOR [Concomitant]
  5. KARDEGIC [Concomitant]
     Dates: end: 20130812
  6. OMEPRAZOLE [Concomitant]
  7. ACTONEL [Concomitant]
  8. METHOTREXATE [Concomitant]
  9. ACIDE FOLIQUE [Concomitant]
  10. LEVETIRACETAM [Concomitant]
     Indication: STATUS EPILEPTICUS
     Dosage: 500 MG
     Dates: start: 20130813
  11. LEVETIRACETAM [Concomitant]
     Dosage: 1000 MG
     Dates: start: 20130822
  12. LEVETIRACETAM [Concomitant]
     Dosage: 1500 MG
     Dates: start: 20131002
  13. LEVETIRACETAM [Concomitant]
     Dosage: 2000 MG
     Dates: start: 20131025
  14. LEVETIRACETAM [Concomitant]
     Dosage: 1000 MG
     Dates: start: 20131101, end: 20131103
  15. LEVETIRACETAM [Concomitant]
     Dosage: 500 MG
     Dates: start: 20131104, end: 20131105

REACTIONS (3)
  - Myoclonus [Unknown]
  - Confusional state [Unknown]
  - Drug interaction [Unknown]
